FAERS Safety Report 12668866 (Version 1)
Quarter: 2016Q3

REPORT INFORMATION
  Report Type: Spontaneous
  Country: BR (occurrence: BR)
  Receive Date: 20160819
  Receipt Date: 20160819
  Transmission Date: 20161109
  Serious: Yes (Other)
  Sender: FDA-Public Use
  Company Number: BR-PFIZER INC-2016381250

PATIENT
  Age: 81 Year
  Sex: Female

DRUGS (9)
  1. CARVEDILOL. [Concomitant]
     Active Substance: CARVEDILOL
     Dosage: 1 TABLET PER DAY
     Route: 048
     Dates: start: 20160802
  2. OMEGA 3 /01333901/ [Concomitant]
     Active Substance: FISH OIL\TOCOPHEROL
     Dosage: 1X/DAY
     Route: 048
     Dates: start: 2008
  3. ALENIA /01479302/ [Concomitant]
     Indication: ASTHMA
     Dosage: 2X/DAY
     Dates: start: 2006
  4. DRENATAN [Suspect]
     Active Substance: LATANOPROST
     Dosage: UNK
  5. ENALAPRIL [Concomitant]
     Active Substance: ENALAPRIL
     Indication: HYPERTENSION
     Dosage: 1 IN THE MORNING, 1 AT NIGHT
     Route: 048
     Dates: start: 20160802
  6. ROSUVASTATIN CALCIUM. [Concomitant]
     Active Substance: ROSUVASTATIN CALCIUM
     Dosage: 1 TABLET PER DAY
     Route: 048
     Dates: start: 20160802
  7. AZOPT [Concomitant]
     Active Substance: BRINZOLAMIDE
     Indication: GLAUCOMA
     Dosage: 1 DROP IN THE MORNING, 1 DROP AT NIGHT
     Route: 047
     Dates: start: 2015
  8. ALENIA /01479302/ [Concomitant]
     Indication: BRONCHITIS
  9. XALATAN [Suspect]
     Active Substance: LATANOPROST
     Indication: GLAUCOMA
     Dosage: 1 DROP IN THE MORNING AND1 DROP AT NIGHT
     Route: 047

REACTIONS (4)
  - Cataract [Unknown]
  - Product use issue [Unknown]
  - Blindness unilateral [Unknown]
  - Blood pressure increased [Unknown]
